FAERS Safety Report 11051542 (Version 2)
Quarter: 2015Q2

REPORT INFORMATION
  Report Type: Spontaneous
  Country: CH (occurrence: CH)
  Receive Date: 20150421
  Receipt Date: 20150423
  Transmission Date: 20150821
  Serious: Yes (Other)
  Sender: FDA-Public Use
  Company Number: CH-PFIZER INC-2015130818

PATIENT
  Age: 67 Year
  Sex: Male

DRUGS (32)
  1. NORVASC [Suspect]
     Active Substance: AMLODIPINE BESYLATE
     Dosage: UNK
     Dates: start: 20150222
  2. TAZOBAC [Suspect]
     Active Substance: PIPERACILLIN SODIUM\TAZOBACTAM SODIUM
     Dosage: UNK
     Dates: start: 20150212, end: 20150218
  3. MAGNESIOCARD [Concomitant]
     Active Substance: MAGNESIUM ASPARTATE HYDROCHLORIDE
     Dosage: UNK
  4. PURSENNID [Concomitant]
     Active Substance: SENNOSIDES A AND B
     Dosage: UNK
  5. TEMESTA [Suspect]
     Active Substance: LORAZEPAM
     Dosage: 6 MG, UNK
     Dates: start: 20150216, end: 20150226
  6. DAFALGAN [Suspect]
     Active Substance: ACETAMINOPHEN
     Dosage: UNK
     Dates: end: 20150212
  7. TOREM [Suspect]
     Active Substance: TORSEMIDE
     Dosage: UNK
     Dates: start: 20150208, end: 20150211
  8. ZOLPIDEM [Concomitant]
     Active Substance: ZOLPIDEM\ZOLPIDEM TARTRATE
     Dosage: UNK
     Dates: start: 20150228
  9. DUPHALAC [Concomitant]
     Active Substance: LACTULOSE
     Dosage: UNK
  10. KCL RETARD ZYMA [Concomitant]
     Dosage: UNK
  11. FRAGMIN [Concomitant]
     Active Substance: DALTEPARIN SODIUM
     Dosage: UNK
  12. ZESTRIL [Suspect]
     Active Substance: LISINOPRIL
     Dosage: UNK
     Dates: start: 20150213
  13. PARAGAR [Concomitant]
     Dosage: UNK
  14. ATARAX [Concomitant]
     Active Substance: HYDROXYZINE\HYDROXYZINE HYDROCHLORIDE
     Dosage: UNK
     Dates: start: 20150301, end: 20150301
  15. NOVALGIN [Suspect]
     Active Substance: METAMIZOLE SODIUM
     Dosage: UNK
     Dates: start: 20150208, end: 20150211
  16. NOVALGIN [Suspect]
     Active Substance: METAMIZOLE SODIUM
     Dosage: UNK
     Dates: end: 20150226
  17. DAFALGAN [Suspect]
     Active Substance: ACETAMINOPHEN
     Dosage: UNK
     Dates: end: 20150227
  18. PERFALGAN [Suspect]
     Active Substance: ACETAMINOPHEN
     Dosage: UNK
     Dates: start: 20150208
  19. PERFALGAN [Suspect]
     Active Substance: ACETAMINOPHEN
     Dosage: UNK
     Dates: start: 20150212, end: 20150213
  20. ADALAT [Suspect]
     Active Substance: NIFEDIPINE
     Dosage: UNK
     Dates: start: 20150207
  21. ANGIOX [Concomitant]
     Active Substance: BIVALIRUDIN
     Dosage: UNK
     Dates: start: 20150213, end: 20150302
  22. DIPIPERON [Suspect]
     Active Substance: PIPAMPERONE
     Dosage: UNK
     Dates: start: 20150207, end: 20150214
  23. LASIX [Suspect]
     Active Substance: FUROSEMIDE
     Dosage: UNK
     Dates: start: 20150208, end: 20150208
  24. ADALAT [Suspect]
     Active Substance: NIFEDIPINE
     Dosage: UNK
     Dates: start: 20150211
  25. VALVERDE [Concomitant]
     Active Substance: HERBALS
     Dosage: UNK
  26. PANTOZOL [Suspect]
     Active Substance: PANTOPRAZOLE SODIUM
     Dosage: UNK
     Dates: start: 20150208, end: 20150302
  27. CONCOR [Concomitant]
     Active Substance: BISOPROLOL FUMARATE
     Dosage: UNK
  28. MARCOUMAR [Concomitant]
     Active Substance: PHENPROCOUMON
     Dosage: UNK
  29. ASPIRIN CARDIO [Suspect]
     Active Substance: ASPIRIN
     Dosage: UNK
     Dates: start: 20150211, end: 20150225
  30. DAFALGAN [Suspect]
     Active Substance: ACETAMINOPHEN
     Dosage: UNK
     Dates: start: 20150208, end: 20150210
  31. VANCOCIN [Suspect]
     Active Substance: VANCOMYCIN HYDROCHLORIDE
     Dosage: UNK
     Dates: start: 20150221, end: 20150225
  32. NERVIFENE [Suspect]
     Active Substance: CHLORAL HYDRATE
     Dosage: UNK
     Dates: start: 20150227, end: 20150228

REACTIONS (1)
  - Neutropenia [Unknown]

NARRATIVE: CASE EVENT DATE: 20150302
